FAERS Safety Report 5670951-9 (Version None)
Quarter: 2008Q2

REPORT INFORMATION
  Report Type: 
  Country: None (occurrence: None)
  Receive Date: 20080305
  Receipt Date: 20071109
  Transmission Date: 20081010
  Serious: Yes (Other)
  Sender: FDA-Public Use
  Company Number: BDI-010533

PATIENT
  Age: 60 Year
  Sex: Male
  Weight: 63.05 kg

DRUGS (8)
  1. ISOVUE-370 [Suspect]
     Indication: ANGIOGRAM
     Dosage: 100ML ONCE INTRAVENOUS
     Route: 042
     Dates: start: 20071109, end: 20071109
  2. ISOVUE-370 [Suspect]
     Indication: COMPUTERISED TOMOGRAM
     Dosage: 100ML ONCE INTRAVENOUS
     Route: 042
     Dates: start: 20071109, end: 20071109
  3. TRICOR [Concomitant]
  4. PRILOSEC [Concomitant]
  5. ZOLOFT [Concomitant]
  6. DIOVAN [Concomitant]
  7. NITROGLYCERIN [Concomitant]
  8. MOBIC [Concomitant]

REACTIONS (1)
  - ANAPHYLACTOID REACTION [None]
